FAERS Safety Report 12289690 (Version 1)
Quarter: 2016Q2

REPORT INFORMATION
  Report Type: Spontaneous
  Country: GR (occurrence: GR)
  Receive Date: 20160421
  Receipt Date: 20160421
  Transmission Date: 20160815
  Serious: Yes (Death, Other)
  Sender: FDA-Public Use
  Company Number: GR-ACORDA-ACO_123142_2016

PATIENT
  Sex: Male

DRUGS (2)
  1. QUTENZA [Suspect]
     Active Substance: CAPSAICIN
     Indication: NEURALGIA
     Dosage: 2 DF, (2 PATCHES), UNKNOWN FREQ.
     Route: 003
     Dates: start: 20151112, end: 20151112
  2. QUTENZA [Suspect]
     Active Substance: CAPSAICIN
     Dosage: 2 DF, (2 PATCHES), UNKNOWN FREQ.
     Route: 003
     Dates: start: 20151114, end: 20151114

REACTIONS (1)
  - Neoplasm malignant [Fatal]
